FAERS Safety Report 25142412 (Version 1)
Quarter: 2025Q1

REPORT INFORMATION
  Report Type: Spontaneous
  Country: US (occurrence: US)
  Receive Date: 20250331
  Receipt Date: 20250331
  Transmission Date: 20250409
  Serious: Yes (Hospitalization)
  Sender: LUNDBECK
  Company Number: US-LUNDBECK-DKLU4012642

PATIENT
  Age: 54 Year
  Sex: Female

DRUGS (1)
  1. VYEPTI [Suspect]
     Active Substance: EPTINEZUMAB-JJMR
     Indication: Migraine prophylaxis
     Route: 041
     Dates: start: 20250211

REACTIONS (5)
  - Harlequin syndrome [Recovering/Resolving]
  - Swelling face [Recovering/Resolving]
  - Dysphagia [Recovering/Resolving]
  - Chorea [Recovering/Resolving]
  - Hyperhidrosis [Unknown]

NARRATIVE: CASE EVENT DATE: 20250201
